FAERS Safety Report 9885813 (Version 2)
Quarter: 2014Q2

REPORT INFORMATION
  Report Type: Spontaneous
  Country: GB (occurrence: None)
  Receive Date: 20140206
  Receipt Date: 20140425
  Transmission Date: 20141212
  Serious: Yes (Hospitalization, Other)
  Sender: FDA-Public Use
  Company Number: AUR-APL-2014-01283

PATIENT
  Age: 48 Hour
  Sex: Female
  Weight: 2.26 kg

DRUGS (1)
  1. QUETIAPINE [Suspect]
     Indication: PRODUCT USED FOR UNKNOWN INDICATION
     Dosage: 300 MG 1 IN 1 DAY, TRNAPLACENTAL.
     Route: 064

REACTIONS (3)
  - Maternal drugs affecting foetus [None]
  - Vomiting [None]
  - Drug withdrawal syndrome neonatal [None]
